FAERS Safety Report 4638993-X (Version None)
Quarter: 2005Q2

REPORT INFORMATION
  Report Type: 
  Country: None (occurrence: None)
  Receive Date: 20050419
  Receipt Date: 20031218
  Transmission Date: 20051028
  Serious: Yes (Hospitalization)
  Sender: FDA-Public Use
  Company Number: DE-ROCHE-354373

PATIENT
  Age: 34 Year
  Sex: Male
  Weight: 73 kg

DRUGS (32)
  1. DACLIZUMAB [Suspect]
     Route: 042
     Dates: end: 20031009
  2. DACLIZUMAB [Suspect]
     Route: 042
     Dates: start: 20030815, end: 20030815
  3. MYCOPHENOLATE MOFETIL [Suspect]
     Route: 048
     Dates: start: 20030815
  4. MYCOPHENOLATE MOFETIL [Suspect]
     Route: 048
     Dates: start: 20030920
  5. MYCOPHENOLATE MOFETIL [Suspect]
     Route: 048
     Dates: start: 20031230, end: 20040113
  6. CYCLOSPORINE [Suspect]
     Route: 048
     Dates: start: 20030815, end: 20030815
  7. CYCLOSPORINE [Suspect]
     Route: 048
     Dates: start: 20030816
  8. CYCLOSPORINE [Suspect]
     Dosage: 150 + 125
     Route: 048
     Dates: start: 20030820
  9. CYCLOSPORINE [Suspect]
     Route: 048
     Dates: start: 20030910
  10. CYCLOSPORINE [Suspect]
     Route: 048
     Dates: start: 20031023
  11. CYCLOSPORINE [Suspect]
     Route: 048
     Dates: start: 20031203
  12. CYCLOSPORINE [Suspect]
     Route: 048
     Dates: start: 20031205
  13. CYCLOSPORINE [Suspect]
     Dosage: 125+100
     Route: 048
     Dates: start: 20031217, end: 20031222
  14. METHYLPREDNISOLONE [Suspect]
     Route: 048
     Dates: start: 20030914
  15. METHYLPREDNISOLONE [Suspect]
     Route: 042
     Dates: start: 20030808
  16. TACROLIMUS [Suspect]
     Dosage: ADJUSTED TO REACH PREDEFINED LEVELS.
     Route: 048
     Dates: start: 20031222
  17. ATORVASTATIN CALCIUM [Concomitant]
     Route: 048
     Dates: start: 20030911
  18. CALCIUM CARBONATE [Concomitant]
     Dosage: REDUCED TO 3 GRAM DAILY ON 19 DECEMBER 2003.
     Route: 048
     Dates: start: 20030908
  19. METOPROLOL TARTRATE [Concomitant]
     Route: 048
     Dates: start: 20030815
  20. LOSARTAN POTASSIUM [Concomitant]
     Route: 048
     Dates: start: 20030815, end: 20031218
  21. ENALAPRIL [Concomitant]
     Route: 048
     Dates: start: 20031024
  22. PENTOXIFYLLINE [Concomitant]
  23. CALCITRIOL [Concomitant]
     Route: 048
     Dates: start: 20031009, end: 20031229
  24. RANITIDINE HCL [Concomitant]
     Route: 048
     Dates: start: 20030815
  25. CANDESARTAN [Concomitant]
     Route: 048
     Dates: start: 20031217
  26. NADROPARIN [Concomitant]
     Route: 058
     Dates: start: 20031220
  27. ACYCLOVIR [Concomitant]
     Dates: start: 20030820, end: 20030905
  28. AMPHOTERICIN B [Concomitant]
     Dates: start: 20030815, end: 20030909
  29. BISOPROLOL FUMARATE [Concomitant]
     Dates: start: 20031023, end: 20031203
  30. CIPROFLOXACIN [Concomitant]
     Dates: start: 20030815, end: 20040106
  31. COTRIMOXAZOL [Concomitant]
     Dates: start: 20030818, end: 20030906
  32. TORSEMIDE [Concomitant]
     Dates: start: 20031023, end: 20031204

REACTIONS (5)
  - BLOOD CREATININE INCREASED [None]
  - DIARRHOEA [None]
  - HYPERTENSION [None]
  - KIDNEY TRANSPLANT REJECTION [None]
  - RENAL ARTERY STENOSIS [None]
